FAERS Safety Report 6463844-0 (Version None)
Quarter: 2009Q4

REPORT INFORMATION
  Report Type: 
  Country: None (occurrence: None)
  Receive Date: 20091201
  Receipt Date: 20091127
  Transmission Date: 20100525
  Serious: Yes (Death, Other)
  Sender: FDA-Public Use
  Company Number: BR-JNJFOC-20091200008

PATIENT
  Age: 18 Year
  Sex: Female

DRUGS (1)
  1. TOPAMAX [Suspect]
     Indication: STRESS
     Route: 048

REACTIONS (3)
  - CONVULSION [None]
  - DEATH [None]
  - MEDICATION ERROR [None]
